FAERS Safety Report 6349103-5 (Version None)
Quarter: 2009Q3

REPORT INFORMATION
  Report Type: 
  Country: None (occurrence: None)
  Receive Date: 20090911
  Receipt Date: 20090831
  Transmission Date: 20100115
  Serious: Yes (Hospitalization)
  Sender: FDA-Public Use
  Company Number: DE-PFIZER INC-2009262113

PATIENT
  Age: 60 Year

DRUGS (3)
  1. PREDNISOLONE AND PREDNISOLONE STEAGLATE [Suspect]
     Indication: PSORIATIC ARTHROPATHY
     Dosage: 5 MG, 1X/DAY
     Route: 048
     Dates: start: 20090101
  2. ENBREL [Suspect]
     Indication: PSORIATIC ARTHROPATHY
     Dosage: 25 MG, 2 IN 1 WEEKS
     Route: 058
     Dates: start: 20090415, end: 20090501
  3. CELECOXIB [Concomitant]
     Dosage: 200 MG, 1X/DAY
     Route: 048
     Dates: start: 20071201

REACTIONS (2)
  - ABDOMINAL WALL DISORDER [None]
  - CHOLELITHIASIS [None]
